FAERS Safety Report 12159210 (Version 2)
Quarter: 2016Q2

REPORT INFORMATION
  Report Type: Spontaneous
  Country: FR (occurrence: FR)
  Receive Date: 20160308
  Receipt Date: 20160627
  Transmission Date: 20160815
  Serious: Yes (Hospitalization)
  Sender: FDA-Public Use
  Company Number: FR-BAYER-2016-038733

PATIENT
  Age: 88 Year
  Sex: Female

DRUGS (9)
  1. CIFLOX [Suspect]
     Active Substance: CIPROFLOXACIN
     Indication: DIVERTICULUM INTESTINAL
     Dosage: 500 MG, BID
     Route: 048
     Dates: start: 20160208, end: 20160215
  2. PAROXETINE. [Concomitant]
     Active Substance: PAROXETINE
     Dosage: DAILY DOSE 20 MG
  3. LOSARTAN. [Concomitant]
     Active Substance: LOSARTAN
     Dosage: DAILY DOSE 75 MG
  4. LYRICA [Concomitant]
     Active Substance: PREGABALIN
     Dosage: 50 MG, TID
  5. FLAGYL [Suspect]
     Active Substance: METRONIDAZOLE\METRONIDAZOLE HYDROCHLORIDE
     Indication: DIVERTICULUM INTESTINAL
     Dosage: 500 MG, TID
     Dates: start: 20160208, end: 20160215
  6. MIRTAZAPINE. [Concomitant]
     Active Substance: MIRTAZAPINE
     Dosage: 15 MG,1/2 TABLET IN THE EVENING
  7. PREVISCAN [Concomitant]
     Active Substance: FLUINDIONE
     Dosage: 1/2 TABLET IN THE EVENING
  8. LASILIX [Concomitant]
     Active Substance: FUROSEMIDE
     Dosage: DAILY DOSE 20 MG
  9. ZOPICLONE [Concomitant]
     Active Substance: ZOPICLONE
     Dosage: 1/2 TABLET

REACTIONS (3)
  - Acute respiratory failure [Recovered/Resolved]
  - Respiratory acidosis [Recovered/Resolved]
  - Tremor [Recovered/Resolved]

NARRATIVE: CASE EVENT DATE: 20160208
